FAERS Safety Report 24047287 (Version 1)
Quarter: 2024Q3

REPORT INFORMATION
  Report Type: Spontaneous
  Country: US (occurrence: US)
  Receive Date: 20240703
  Receipt Date: 20240703
  Transmission Date: 20241016
  Serious: Yes (Hospitalization)
  Sender: BRISTOL MYERS SQUIBB
  Company Number: US-BRISTOL-MYERS SQUIBB COMPANY-2024-103509

PATIENT
  Age: 94 Year
  Sex: Female
  Weight: 47 kg

DRUGS (9)
  1. REVLIMID [Suspect]
     Active Substance: LENALIDOMIDE
     Indication: Plasma cell myeloma
     Route: 048
     Dates: start: 20230120
  2. ELIQUIS [Concomitant]
     Active Substance: APIXABAN
  3. ATENOLOL [Concomitant]
     Active Substance: ATENOLOL
  4. FUROSEMIDE [Concomitant]
     Active Substance: FUROSEMIDE
  5. LOSARTAN [Concomitant]
     Active Substance: LOSARTAN
  6. PROGESTERONE [Concomitant]
     Active Substance: PROGESTERONE
  7. VITAMINS [Concomitant]
     Active Substance: VITAMINS
  8. OMEPRAZOLE [Concomitant]
     Active Substance: OMEPRAZOLE
     Dosage: (OTC)
  9. POTASSIUM CHLORIDE [Concomitant]
     Active Substance: POTASSIUM CHLORIDE
     Dosage: ER

REACTIONS (1)
  - Hospitalisation [Unknown]
